FAERS Safety Report 18368338 (Version 1)
Quarter: 2020Q4

REPORT INFORMATION
  Report Type: Spontaneous
  Country: US (occurrence: US)
  Receive Date: 20201009
  Receipt Date: 20201009
  Transmission Date: 20210114
  Serious: No
  Sender: FDA-Public Use
  Company Number: US-009507513-2010USA002658

PATIENT
  Age: 38 Year
  Sex: Male

DRUGS (1)
  1. NOXAFIL [Suspect]
     Active Substance: POSACONAZOLE
     Indication: COCCIDIOIDOMYCOSIS
     Dosage: 300 MILLIGRAM, QD
     Route: 048

REACTIONS (3)
  - Gynaecomastia [Not Recovered/Not Resolved]
  - Pseudoaldosteronism [Unknown]
  - Product use in unapproved indication [Unknown]
